FAERS Safety Report 9465867 (Version 2)
Quarter: 2013Q3

REPORT INFORMATION
  Report Type: Spontaneous
  Country: DE (occurrence: DE)
  Receive Date: 20130820
  Receipt Date: 20130820
  Transmission Date: 20140515
  Serious: Yes (Hospitalization)
  Sender: FDA-Public Use
  Company Number: DE-UCBSA-095227

PATIENT
  Age: 57 Year
  Sex: Female
  Weight: 100 kg

DRUGS (3)
  1. KEPPRA [Suspect]
     Dosage: DOSE: 2 X 1500
     Route: 048
  2. VALPROATE CHRONO [Suspect]
     Dosage: 2 TABLETS
     Route: 048
  3. RAMIPRIL [Suspect]
     Dosage: 2 TABLETS, RAMIPRIL 5
     Route: 048

REACTIONS (4)
  - Hypokalaemia [Recovered/Resolved]
  - Fatigue [Recovered/Resolved]
  - Hypotension [Recovered/Resolved]
  - Accidental exposure to product [Unknown]
